FAERS Safety Report 24466747 (Version 2)
Quarter: 2025Q4

REPORT INFORMATION
  Report Type: Spontaneous
  Country: US (occurrence: US)
  Receive Date: 20241018
  Receipt Date: 20251231
  Transmission Date: 20260117
  Serious: No
  Sender: ROCHE
  Company Number: US-ROCHE-3553203

PATIENT
  Age: 41 Year
  Sex: Male
  Weight: 76.2 kg

DRUGS (2)
  1. XOLAIR [Suspect]
     Active Substance: OMALIZUMAB
     Indication: Chronic spontaneous urticaria
     Dosage: ON 17/APR/2024, RECEIVED THE LAST DOSING AT THE HCP OFFICE WAS 150MG IS TAKEN ONCE EVERY 4 WEEKS.
     Route: 058
  2. XOLAIR [Suspect]
     Active Substance: OMALIZUMAB
     Indication: Asthma

REACTIONS (2)
  - Product storage error [Unknown]
  - Gastrooesophageal reflux disease [Unknown]
